FAERS Safety Report 8531119-1 (Version None)
Quarter: 2012Q3

REPORT INFORMATION
  Report Type: 
  Country: None (occurrence: None)
  Receive Date: 20120711
  Receipt Date: 20120622
  Transmission Date: 20120928
  Serious: No
  Sender: FDA-Public Use
  Company Number: THQ2012A05762

PATIENT
  Age: 81 Year
  Sex: Female

DRUGS (8)
  1. INDAPAMIDE [Concomitant]
  2. ACTOS [Suspect]
     Indication: DIABETES MELLITUS
     Dosage: 30 MG (30 MG, 1 IN 1 D)
     Route: 048
     Dates: start: 20090101
  3. UNKNOWN PRODUCT (ALL OTHER THERAPEUTIC PRODUCTS) [Suspect]
     Indication: PRODUCT USED FOR UNKNOWN INDICATION
  4. GALVUS (VILDAGLIPTIN) [Concomitant]
  5. SUSTRATE (PROPATYLNITRATE) [Concomitant]
  6. CRESTOR [Concomitant]
  7. METOPROLOL SUCCINATE [Concomitant]
  8. AMARYL [Concomitant]

REACTIONS (9)
  - BLISTER [None]
  - NECK PAIN [None]
  - CHEMICAL INJURY [None]
  - MYOCARDIAL INFARCTION [None]
  - DYSPNOEA [None]
  - VASODILATATION [None]
  - DRUG HYPERSENSITIVITY [None]
  - DERMATITIS ALLERGIC [None]
  - PAIN IN EXTREMITY [None]
